FAERS Safety Report 9653169 (Version 1)
Quarter: 2013Q4

REPORT INFORMATION
  Report Type: Spontaneous
  Country: US (occurrence: US)
  Receive Date: 20131029
  Receipt Date: 20131029
  Transmission Date: 20140711
  Serious: Yes (Hospitalization)
  Sender: FDA-Public Use
  Company Number: US-GLAXOSMITHKLINE-A1046325A

PATIENT
  Age: 69 Year
  Sex: Female

DRUGS (5)
  1. ADVAIR [Suspect]
     Indication: ASTHMA
     Dosage: 1PUFF TWICE PER DAY
     Route: 055
     Dates: start: 201308, end: 201309
  2. ATENOLOL [Concomitant]
  3. SYNTHROID [Concomitant]
  4. HYDROCHLOROTHIAZIDE [Concomitant]
  5. ASPIRIN LOW DOSE [Concomitant]

REACTIONS (5)
  - Rales [Unknown]
  - Breath sounds abnormal [Unknown]
  - Expired drug administered [Unknown]
  - Off label use [Unknown]
  - Cardiac disorder [Unknown]
